FAERS Safety Report 17289033 (Version 4)
Quarter: 2020Q1

REPORT INFORMATION
  Report Type: Spontaneous
  Country: CA (occurrence: CA)
  Receive Date: 20200120
  Receipt Date: 20200203
  Transmission Date: 20200409
  Serious: Yes (Death)
  Sender: FDA-Public Use
  Company Number: CA-ABBVIE-20K-028-3240002-00

PATIENT
  Age: 57 Year
  Sex: Male
  Weight: 73 kg

DRUGS (6)
  1. DIGOXIN. [Concomitant]
     Active Substance: DIGOXIN
     Indication: PRODUCT USED FOR UNKNOWN INDICATION
  2. SODIUM CHLORIDE. [Concomitant]
     Active Substance: SODIUM CHLORIDE
     Indication: PRODUCT USED FOR UNKNOWN INDICATION
  3. PREDNISONE. [Concomitant]
     Active Substance: PREDNISONE
     Indication: PRODUCT USED FOR UNKNOWN INDICATION
  4. NASONEX [Concomitant]
     Active Substance: MOMETASONE FUROATE
     Indication: PRODUCT USED FOR UNKNOWN INDICATION
     Dosage: SPRAY, METERED?DOSE
  5. IMBRUVICA [Suspect]
     Active Substance: IBRUTINIB
     Indication: CHRONIC LYMPHOCYTIC LEUKAEMIA RECURRENT
     Route: 048
  6. PROPAFENONE. [Concomitant]
     Active Substance: PROPAFENONE
     Indication: PRODUCT USED FOR UNKNOWN INDICATION

REACTIONS (24)
  - Multiple organ dysfunction syndrome [Fatal]
  - Acute kidney injury [Fatal]
  - Nausea [Fatal]
  - Acute respiratory distress syndrome [Fatal]
  - Transaminases increased [Fatal]
  - Decreased activity [Fatal]
  - Dehydration [Fatal]
  - Weight decreased [Fatal]
  - Diarrhoea [Fatal]
  - Thrombocytopenia [Fatal]
  - Rash [Fatal]
  - Platelet count decreased [Fatal]
  - Cardiogenic shock [Fatal]
  - Haemophagocytic lymphohistiocytosis [Fatal]
  - Pyrexia [Fatal]
  - Chills [Fatal]
  - Haemoglobin decreased [Fatal]
  - Decreased appetite [Fatal]
  - Fatigue [Fatal]
  - Vomiting [Fatal]
  - Disseminated intravascular coagulation [Fatal]
  - Lactic acidosis [Fatal]
  - Right ventricular failure [Fatal]
  - Night sweats [Fatal]
